FAERS Safety Report 9098740 (Version 4)
Quarter: 2013Q2

REPORT INFORMATION
  Report Type: Spontaneous
  Country: US (occurrence: US)
  Receive Date: 20130213
  Receipt Date: 20130412
  Transmission Date: 20140414
  Serious: Yes (Hospitalization, Other)
  Sender: FDA-Public Use
  Company Number: US-PFIZER INC-2013052741

PATIENT
  Age: 79 Year
  Sex: Female
  Weight: 77.1 kg

DRUGS (5)
  1. XALATAN [Suspect]
     Dosage: 1 GTT IN EACH EYE, DAILY
     Route: 047
  2. ACCUPRIL [Suspect]
     Dosage: 40 MG, 1X/DAY
     Route: 048
  3. NPH INSULIN [Concomitant]
     Dosage: UNK
  4. METOPROLOL [Concomitant]
     Dosage: 50 MG, UNK
  5. HYDROCHLOROTHIAZIDE [Concomitant]
     Dosage: 25 MG, UNK

REACTIONS (2)
  - Myocardial infarction [Recovering/Resolving]
  - Transient ischaemic attack [Recovering/Resolving]
